FAERS Safety Report 11273210 (Version 2)
Quarter: 2016Q4

REPORT INFORMATION
  Report Type: Report from Study
  Country: US (occurrence: US)
  Receive Date: 20150715
  Receipt Date: 20161021
  Transmission Date: 20170206
  Serious: Yes (Other)
  Sender: FDA-Public Use
  Company Number: US-SANOFI-AVENTIS-2013SA078501

PATIENT
  Age: 66 Year
  Sex: Male

DRUGS (1)
  1. AUBAGIO [Suspect]
     Active Substance: TERIFLUNOMIDE
     Indication: MULTIPLE SCLEROSIS
     Route: 048
     Dates: start: 20130716

REACTIONS (6)
  - Vomiting [Unknown]
  - Arthropathy [Unknown]
  - Fall [Recovering/Resolving]
  - Urinary retention [Unknown]
  - Urinary tract infection [Unknown]
  - Unevaluable event [Unknown]
